FAERS Safety Report 25177777 (Version 1)
Quarter: 2025Q2

REPORT INFORMATION
  Report Type: Spontaneous
  Country: US (occurrence: US)
  Receive Date: 20250409
  Receipt Date: 20250409
  Transmission Date: 20250716
  Serious: No
  Sender: ABBVIE
  Company Number: US-ABBVIE-6212554

PATIENT

DRUGS (2)
  1. UBROGEPANT [Suspect]
     Active Substance: UBROGEPANT
     Indication: Product used for unknown indication
     Route: 048
  2. RIMEGEPANT [Suspect]
     Active Substance: RIMEGEPANT
     Indication: Product used for unknown indication
     Route: 065

REACTIONS (5)
  - Paradoxical drug reaction [Unknown]
  - Drug ineffective [Unknown]
  - Nausea [Unknown]
  - Migraine [Unknown]
  - Hemicrania continua [Unknown]
